FAERS Safety Report 8104664-0 (Version None)
Quarter: 2012Q1

REPORT INFORMATION
  Report Type: 
  Country: None (occurrence: None)
  Receive Date: 20120130
  Receipt Date: 20120124
  Transmission Date: 20120608
  Serious: Yes (Hospitalization)
  Sender: FDA-Public Use
  Company Number: PHHO2010DE06622

PATIENT
  Sex: Male

DRUGS (2)
  1. EVEROLIMUS [Suspect]
     Indication: LIVER TRANSPLANT
     Dosage: 1 MG, BID
     Route: 048
     Dates: start: 20091030, end: 20100324
  2. TACROLIMUS [Suspect]
     Indication: LIVER TRANSPLANT
     Dosage: 2.5 MG, UNK
     Route: 048
     Dates: start: 20091030

REACTIONS (7)
  - COMPLICATIONS OF TRANSPLANTED LIVER [None]
  - TRANSAMINASES INCREASED [None]
  - BLOOD BILIRUBIN INCREASED [None]
  - BILE DUCT STENOSIS [None]
  - LIVER TRANSPLANT REJECTION [None]
  - HEPATIC ARTERY STENOSIS [None]
  - DRUG INEFFECTIVE [None]
